FAERS Safety Report 21802807 (Version 1)
Quarter: 2022Q4

REPORT INFORMATION
  Report Type: Spontaneous
  Country: GB (occurrence: GB)
  Receive Date: 20221231
  Receipt Date: 20221231
  Transmission Date: 20230113
  Serious: Yes (Death, Hospitalization, Other)
  Sender: FDA-Public Use
  Company Number: GB-AMGEN-GBRSP2022223276

PATIENT
  Age: 54 Year
  Sex: Female

DRUGS (5)
  1. TRASTUZUMAB [Suspect]
     Active Substance: TRASTUZUMAB
     Indication: HER2 positive breast cancer
     Dosage: UNK
     Route: 065
  2. TRASTUZUMAB [Suspect]
     Active Substance: TRASTUZUMAB
     Indication: Breast cancer metastatic
  3. DOCETAXEL [Concomitant]
     Active Substance: DOCETAXEL
     Indication: Breast cancer metastatic
     Dosage: UNK
     Route: 065
  4. PERTUZUMAB [Concomitant]
     Active Substance: PERTUZUMAB
     Indication: Breast cancer metastatic
     Dosage: UNK
     Route: 065
  5. ADO-TRASTUZUMAB EMTANSINE [Concomitant]
     Active Substance: ADO-TRASTUZUMAB EMTANSINE
     Indication: Breast cancer metastatic
     Dosage: UNK
     Route: 065

REACTIONS (10)
  - Death [Fatal]
  - Breast cancer metastatic [Unknown]
  - Wernicke^s encephalopathy [Unknown]
  - Electrolyte imbalance [Unknown]
  - Hypophagia [Unknown]
  - Malnutrition [Unknown]
  - Hypophosphataemia [Unknown]
  - Hypokalaemia [Unknown]
  - Vomiting [Unknown]
  - Off label use [Unknown]
